FAERS Safety Report 5887673-1 (Version None)
Quarter: 2008Q3

REPORT INFORMATION
  Report Type: 
  Country: None (occurrence: None)
  Receive Date: 20080917
  Receipt Date: 20080917
  Transmission Date: 20090109
  Serious: Yes (Hospitalization)
  Sender: FDA-Public Use
  Company Number: None

PATIENT
  Age: 66 Year
  Sex: Male
  Weight: 65.7716 kg

DRUGS (1)
  1. LIPITOR [Suspect]
     Indication: HYPERLIPIDAEMIA
     Dosage: 20 MG PO QD
     Route: 048
     Dates: start: 19940101

REACTIONS (8)
  - ARTHRALGIA [None]
  - GASTROOESOPHAGEAL REFLUX DISEASE [None]
  - MUCOSAL INFLAMMATION [None]
  - MYALGIA [None]
  - PHARYNGEAL DISORDER [None]
  - STOMATITIS [None]
  - SWELLING [None]
  - SYNOVIAL DISORDER [None]
